FAERS Safety Report 10422428 (Version 1)
Quarter: 2014Q3

REPORT INFORMATION
  Report Type: Report from Study
  Country: CA (occurrence: CA)
  Receive Date: 20140901
  Receipt Date: 20140901
  Transmission Date: 20150326
  Serious: Yes (Hospitalization)
  Sender: FDA-Public Use
  Company Number: CA-JNJFOC-20140825937

PATIENT
  Age: 52 Year
  Sex: Female
  Weight: 131 kg

DRUGS (1)
  1. REMICADE [Suspect]
     Active Substance: INFLIXIMAB
     Indication: PSORIASIS
     Route: 042
     Dates: start: 201011

REACTIONS (1)
  - Peripheral embolism [Recovering/Resolving]

NARRATIVE: CASE EVENT DATE: 20140505
